FAERS Safety Report 16388024 (Version 1)
Quarter: 2019Q2

REPORT INFORMATION
  Report Type: Spontaneous
  Country: US (occurrence: US)
  Receive Date: 20190604
  Receipt Date: 20190604
  Transmission Date: 20190711
  Serious: Yes (Hospitalization, Other)
  Sender: FDA-Public Use
  Company Number: US-AUROBINDO-AUR-APL-2019-030625

PATIENT

DRUGS (2)
  1. GABAPENTIN. [Suspect]
     Active Substance: GABAPENTIN
     Indication: PRODUCT USED FOR UNKNOWN INDICATION
     Dosage: UNK
     Route: 065
  2. IPILIMUMAB [Suspect]
     Active Substance: IPILIMUMAB
     Indication: MALIGNANT MELANOMA
     Dosage: 3 MILLIGRAM/KILOGRAM EVERY 3 WEEKS
     Route: 042

REACTIONS (11)
  - Upper motor neurone lesion [Recovered/Resolved]
  - Dizziness [Recovered/Resolved]
  - Vomiting [Unknown]
  - Encephalitis [Unknown]
  - Headache [Recovered/Resolved]
  - Disorientation [Recovered/Resolved]
  - Dysmetria [Recovered/Resolved]
  - Disturbance in attention [Recovered/Resolved]
  - Confusional state [Recovered/Resolved]
  - Gait disturbance [Recovered/Resolved]
  - Nausea [Unknown]
